FAERS Safety Report 17523866 (Version 1)
Quarter: 2020Q1

REPORT INFORMATION
  Report Type: Spontaneous
  Country: US (occurrence: US)
  Receive Date: 20200311
  Receipt Date: 20200311
  Transmission Date: 20200409
  Serious: Yes (Hospitalization)
  Sender: FDA-Public Use
  Company Number: US-ROCHE-2564060

PATIENT
  Age: 17 Year
  Sex: Female

DRUGS (9)
  1. MONTELUKAST [Concomitant]
     Active Substance: MONTELUKAST SODIUM
  2. PYRIDOSTIGMINE [Concomitant]
     Active Substance: PYRIDOSTIGMINE
  3. XOLAIR [Suspect]
     Active Substance: OMALIZUMAB
     Indication: EMBOLISM
     Dosage: ONGOING: YES
     Route: 058
     Dates: start: 20190927
  4. AMPHETAMINE [Concomitant]
     Active Substance: AMPHETAMINE
  5. LORAZEPAM. [Concomitant]
     Active Substance: LORAZEPAM
  6. SYNTHROID [Concomitant]
     Active Substance: LEVOTHYROXINE SODIUM
  7. BELSOMRA [Concomitant]
     Active Substance: SUVOREXANT
  8. DICYCLOMINE [Concomitant]
     Active Substance: DICYCLOMINE HYDROCHLORIDE
  9. XOLAIR [Suspect]
     Active Substance: OMALIZUMAB
     Indication: THROMBOSIS

REACTIONS (2)
  - Weight decreased [Unknown]
  - Sepsis [Unknown]

NARRATIVE: CASE EVENT DATE: 20200125
